FAERS Safety Report 6841944-0 (Version None)
Quarter: 2010Q3

REPORT INFORMATION
  Report Type: 
  Country: None (occurrence: None)
  Receive Date: 20100714
  Receipt Date: 20070716
  Transmission Date: 20110219
  Serious: No
  Sender: FDA-Public Use
  Company Number: US-PFIZER INC-2007060372

PATIENT
  Sex: Female
  Weight: 75 kg

DRUGS (23)
  1. CHANTIX [Suspect]
     Indication: SMOKING CESSATION THERAPY
     Dates: start: 20070101, end: 20070701
  2. MORPHINE [Concomitant]
     Indication: ARTHROPATHY
  3. XANAX [Concomitant]
  4. LUNESTA [Concomitant]
  5. OMEPRAZOLE [Concomitant]
  6. HYDROCODONE [Concomitant]
  7. METOCLOPRAMIDE [Concomitant]
  8. BECONAMINE SR [Concomitant]
  9. NEXIUM [Concomitant]
  10. POTASSIUM CHLORIDE [Concomitant]
  11. DETROL [Concomitant]
  12. CYMBALTA [Concomitant]
  13. IBUPROFEN [Concomitant]
  14. FUROSEMIDE [Concomitant]
  15. ALL OTHER THERAPEUTIC PRODUCTS [Concomitant]
  16. LEVOTHYROXINE SODIUM [Concomitant]
  17. PROMETHAZINE [Concomitant]
  18. DICLOFENAC SODIUM [Concomitant]
  19. ALBUTEROL [Concomitant]
  20. ATACAND [Concomitant]
  21. TOPAMAX [Concomitant]
  22. CAFFEINE [Concomitant]
  23. ACETAMINOPHEN [Concomitant]

REACTIONS (2)
  - FATIGUE [None]
  - NAUSEA [None]
